FAERS Safety Report 22108466 (Version 1)
Quarter: 2023Q1

REPORT INFORMATION
  Report Type: Spontaneous
  Country: US (occurrence: US)
  Receive Date: 20230317
  Receipt Date: 20230317
  Transmission Date: 20230418
  Serious: No
  Sender: FDA-Public Use
  Company Number: US-ALVOGEN-2022-ALVOGEN-120653

PATIENT

DRUGS (2)
  1. ESTRADIOL [Suspect]
     Active Substance: ESTRADIOL
     Indication: Anorexia nervosa
  2. PROGESTERONE [Suspect]
     Active Substance: PROGESTERONE
     Indication: Anorexia nervosa
     Route: 048

REACTIONS (5)
  - Vulvovaginal discomfort [Recovered/Resolved]
  - Menstruation irregular [Recovered/Resolved]
  - Acne [Unknown]
  - Headache [Unknown]
  - Phlebotomy [Unknown]
